FAERS Safety Report 5191382-4 (Version None)
Quarter: 2006Q4

REPORT INFORMATION
  Report Type: 
  Country: None (occurrence: None)
  Receive Date: 20061226
  Receipt Date: 20061211
  Transmission Date: 20070319
  Serious: Yes (Hospitalization)
  Sender: FDA-Public Use
  Company Number: US-ROCHE-474821

PATIENT
  Age: 20 Year
  Sex: Male

DRUGS (2)
  1. ACCUTANE [Suspect]
     Indication: ACNE
     Dosage: STRENGTH REPORTED AS 40 MG AND 20 MG TAB.
     Route: 048
     Dates: start: 20061104, end: 20061111
  2. BIAXIN [Suspect]
     Route: 065
     Dates: start: 20061115, end: 20061123

REACTIONS (2)
  - INFLUENZA LIKE ILLNESS [None]
  - STEVENS-JOHNSON SYNDROME [None]
